FAERS Safety Report 6192180-5 (Version None)
Quarter: 2009Q2

REPORT INFORMATION
  Report Type: 
  Country: None (occurrence: None)
  Receive Date: 20090515
  Receipt Date: 20090505
  Transmission Date: 20091009
  Serious: Yes (Other)
  Sender: FDA-Public Use
  Company Number: GB-ABBOTT-09P-167-0565839-00

PATIENT
  Age: 34 Year
  Sex: Female

DRUGS (5)
  1. RITONAVIR SOFT GELATIN CAPSULES [Suspect]
     Indication: HIV INFECTION
     Route: 048
     Dates: start: 20070303
  2. SAQUINAVIR [Concomitant]
     Indication: HIV INFECTION
     Route: 048
     Dates: start: 20070303
  3. KIVEXA [Concomitant]
     Indication: HIV INFECTION
     Dates: start: 20060202
  4. ABACAVIR SULFATE/LAMIVUDINE [Concomitant]
     Indication: HIV INFECTION
  5. EPZICOM [Concomitant]
     Indication: DRUG USE FOR UNKNOWN INDICATION
     Dates: start: 20060202

REACTIONS (1)
  - ABORTION INDUCED [None]
